FAERS Safety Report 17004326 (Version 2)
Quarter: 2019Q4

REPORT INFORMATION
  Report Type: Report from Study
  Country: PE (occurrence: PE)
  Receive Date: 20191107
  Receipt Date: 20191110
  Transmission Date: 20200122
  Serious: Yes (Hospitalization, Other)
  Sender: FDA-Public Use
  Company Number: PE-UCBSA-2019034721

PATIENT
  Age: 54 Year
  Sex: Female
  Weight: 65 kg

DRUGS (5)
  1. CELECOXIB. [Concomitant]
     Active Substance: CELECOXIB
     Indication: SPONDYLOARTHROPATHY
     Dosage: 200 MILLIGRAM, AS NEEDED (PRN)
     Route: 048
  2. BUPROPION. [Concomitant]
     Active Substance: BUPROPION
     Indication: ANTIDEPRESSANT THERAPY
     Dosage: 150 MILLIGRAM, ONCE DAILY (QD)
     Route: 048
  3. CERTOLIZUMAB PEGOL ASP [Suspect]
     Active Substance: CERTOLIZUMAB PEGOL
     Indication: SPONDYLOARTHROPATHY
     Dosage: 200 MILLIGRAM, EV 2 WEEKS(QOW)
     Route: 058
     Dates: start: 20180101
  4. DEFLAZACORT [Concomitant]
     Active Substance: DEFLAZACORT
     Dosage: 3 MILLIGRAM, ONCE DAILY (QD)
  5. DEFLAZACORT [Concomitant]
     Active Substance: DEFLAZACORT
     Indication: SPONDYLOARTHROPATHY
     Dosage: 6 MILLIGRAM, ONCE DAILY (QD)
     Route: 048

REACTIONS (3)
  - Pyelonephritis [Recovering/Resolving]
  - Vomiting [Recovered/Resolved]
  - Ocular hyperaemia [Recovered/Resolved]

NARRATIVE: CASE EVENT DATE: 20190726
